FAERS Safety Report 10180762 (Version 2)
Quarter: 2014Q2

REPORT INFORMATION
  Report Type: Spontaneous
  Country: US (occurrence: US)
  Receive Date: 20140519
  Receipt Date: 20140519
  Transmission Date: 20141212
  Serious: No
  Sender: FDA-Public Use
  Company Number: US-AMGEN INC.-USASP2014011340

PATIENT
  Age: 73 Year
  Sex: Female

DRUGS (10)
  1. PROLIA [Suspect]
     Indication: OSTEOPENIA
     Dosage: UNK
     Route: 065
     Dates: start: 2012
  2. ZOLOFT [Concomitant]
  3. CYMBALTA [Concomitant]
  4. METOPROLOL                         /00376902/ [Concomitant]
     Dosage: 50 MG, QD
  5. EVOXAC [Concomitant]
  6. HYDROXYCHLOROQUINE [Concomitant]
  7. VITAMIN D                          /00107901/ [Concomitant]
  8. CALCIUM [Concomitant]
  9. RESTASIS [Concomitant]
  10. FLONASE                            /00908302/ [Concomitant]
     Route: 045

REACTIONS (10)
  - Nausea [Unknown]
  - Dizziness [Unknown]
  - Hyperhidrosis [Unknown]
  - Fatigue [Unknown]
  - Asthenia [Unknown]
  - Thinking abnormal [Unknown]
  - Malaise [Unknown]
  - Hypertension [Unknown]
  - Feeling abnormal [Unknown]
  - Drug interaction [Unknown]
